FAERS Safety Report 22206552 (Version 1)
Quarter: 2023Q2

REPORT INFORMATION
  Report Type: Spontaneous
  Country: US (occurrence: None)
  Receive Date: 20230412
  Receipt Date: 20230412
  Transmission Date: 20230721
  Serious: Yes (Death)
  Sender: FDA-Public Use
  Company Number: None

PATIENT
  Age: 65 Year
  Sex: Male
  Weight: 73.30 kg

DRUGS (17)
  1. VIVITROL [Suspect]
     Active Substance: NALTREXONE
     Indication: Substance use disorder
     Dosage: OTHER FREQUENCY : MONTHLY;?
     Route: 030
     Dates: start: 20201210
  2. GENVOYA [Suspect]
     Active Substance: COBICISTAT\ELVITEGRAVIR\EMTRICITABINE\TENOFOVIR ALAFENAMIDE FUMARATE
     Dosage: FREQUENCY : DAILY;?
     Route: 048
  3. ALBUTEROL [Concomitant]
     Active Substance: ALBUTEROL
  4. Citalopram 20mg Tablet [Concomitant]
  5. Multivitamin Tablet [Concomitant]
  6. Ferrous Sulfate 324mg Tablet [Concomitant]
  7. FOLIC ACID [Concomitant]
     Active Substance: FOLIC ACID
  8. Furosemide 20mg Tablet [Concomitant]
  9. Lactulose 10mg/15mL Solution [Concomitant]
  10. Melatonin 5mg Tablet [Concomitant]
  11. NALTREXONE [Concomitant]
     Active Substance: NALTREXONE
  12. Omeprazole 40mg Capsule [Concomitant]
  13. Oyster-D 250mg Tablet [Concomitant]
  14. Spironolactone 50mg T [Concomitant]
  15. Vitamin B-1 100mg Tablet [Concomitant]
  16. Vitamin D3 1000mg Tablet [Concomitant]
  17. XIFAXAN [Concomitant]
     Active Substance: RIFAXIMIN

REACTIONS (1)
  - Pulmonary embolism [None]

NARRATIVE: CASE EVENT DATE: 20230410
